FAERS Safety Report 16896707 (Version 2)
Quarter: 2019Q4

REPORT INFORMATION
  Report Type: Spontaneous
  Country: US (occurrence: US)
  Receive Date: 20191008
  Receipt Date: 20191113
  Transmission Date: 20200122
  Serious: Yes (Death, Other)
  Sender: FDA-Public Use
  Company Number: US-TAKEDA-2019TUS055408

PATIENT
  Age: 18 Year
  Sex: Female
  Weight: 74.5 kg

DRUGS (65)
  1. BRINCIDOFOVIR [Suspect]
     Active Substance: BRINCIDOFOVIR
     Indication: ADENOVIRUS INFECTION
     Dosage: 100 MILLIGRAM
     Route: 048
     Dates: start: 20190622, end: 20190706
  2. ACETAMINOPHEN. [Suspect]
     Active Substance: ACETAMINOPHEN
     Dosage: 1000 MILLIGRAM
     Route: 065
     Dates: start: 20190702, end: 20190702
  3. METHYLPREDNISOLONE. [Suspect]
     Active Substance: METHYLPREDNISOLONE
     Dosage: 18 MILLIGRAM
     Route: 065
     Dates: start: 20190617, end: 20190620
  4. METHYLPREDNISOLONE. [Suspect]
     Active Substance: METHYLPREDNISOLONE
     Dosage: 22 MILLIGRAM
     Route: 065
     Dates: start: 20190607, end: 20190610
  5. OCTREOTIDE. [Suspect]
     Active Substance: OCTREOTIDE
     Indication: DIARRHOEA
     Dosage: 2500 MICROGRAM
     Route: 065
     Dates: start: 20190703
  6. CEFEPIME [Suspect]
     Active Substance: CEFEPIME HYDROCHLORIDE
     Indication: THERAPEUTIC PROCEDURE
     Dosage: 2000 MILLIGRAM
     Route: 065
     Dates: start: 20190705
  7. BUDESONIDE. [Concomitant]
     Active Substance: BUDESONIDE
     Dosage: UNK
     Dates: start: 20190619, end: 20190622
  8. HEPARIN FLUSH [Concomitant]
     Active Substance: HEPARIN SODIUM
     Dosage: UNK
     Dates: start: 20190606
  9. INSULIN GLARGINE [Concomitant]
     Active Substance: INSULIN GLARGINE
     Dosage: UNK
     Dates: start: 20190626
  10. LEUPROLIDE                         /00726901/ [Concomitant]
     Active Substance: LEUPROLIDE
     Dosage: UNK
     Dates: start: 20190623, end: 20190623
  11. NALOXONE HCL [Concomitant]
     Active Substance: NALOXONE HYDROCHLORIDE
     Dosage: UNK
     Dates: start: 20190607
  12. PANTOPRAZOLE SODIUM SESQUIHYDRATE [Concomitant]
     Active Substance: PANTOPRAZOLE SODIUM
     Dosage: UNK
     Dates: start: 20190607
  13. HYDRALAZINE HYDROCHLORIDE. [Concomitant]
     Active Substance: HYDRALAZINE HYDROCHLORIDE
     Dosage: UNK
     Dates: start: 20190604
  14. BENZOCAIN [Concomitant]
     Active Substance: BENZOCAINE
     Dosage: UNK
     Dates: start: 20190613
  15. METHYLPREDNISOLONE. [Suspect]
     Active Substance: METHYLPREDNISOLONE
     Dosage: 12 MILLIGRAM
     Route: 065
     Dates: start: 20190702, end: 20190704
  16. NORETHINDRONE                      /00044901/ [Suspect]
     Active Substance: NORETHINDRONE
     Dosage: 5 MILLIGRAM
     Route: 065
     Dates: start: 20190710
  17. HYDROXYZINE [Concomitant]
     Active Substance: HYDROXYZINE HYDROCHLORIDE
     Dosage: UNK
     Dates: start: 20190605
  18. AMLODIPINE BESILATE [Concomitant]
     Active Substance: AMLODIPINE BESYLATE
     Dosage: UNK
     Dates: start: 20190623, end: 20190704
  19. SODIUM CHLORIDE. [Concomitant]
     Active Substance: SODIUM CHLORIDE
     Dosage: UNK
     Dates: start: 20190606
  20. MIDAZOLAM HYDROCHLORIDE. [Concomitant]
     Active Substance: MIDAZOLAM HYDROCHLORIDE
     Dosage: UNK
     Dates: start: 20190614, end: 20190614
  21. PIPERACILLIN AND TAZOBACTAM [Concomitant]
     Active Substance: PIPERACILLIN SODIUM\TAZOBACTAM SODIUM
     Dosage: UNK
     Dates: start: 20190614, end: 20190614
  22. METHADONE HCL [Concomitant]
     Active Substance: METHADONE HYDROCHLORIDE
     Dosage: UNK
     Dates: start: 20190620
  23. ERGOCALCIFEROL. [Concomitant]
     Active Substance: ERGOCALCIFEROL
     Dosage: UNK
     Dates: start: 20190619
  24. ECULIZUMAB [Concomitant]
     Active Substance: ECULIZUMAB
     Dosage: UNK
     Dates: start: 20190519, end: 20190705
  25. AMINOCAPROIC ACID. [Concomitant]
     Active Substance: AMINOCAPROIC ACID
     Dosage: UNK
     Dates: start: 20190610
  26. EPINEPHRINE. [Concomitant]
     Active Substance: EPINEPHRINE
     Dosage: UNK
     Dates: start: 20190622, end: 20190622
  27. CHLOROTHIAZIDE. [Concomitant]
     Active Substance: CHLOROTHIAZIDE
     Dosage: UNK
     Dates: start: 20190610, end: 20190624
  28. ENTYVIO [Suspect]
     Active Substance: VEDOLIZUMAB
     Indication: GRAFT VERSUS HOST DISEASE
     Dosage: 300 MILLIGRAM
     Route: 065
     Dates: start: 20190702, end: 20190702
  29. ACETAMINOPHEN. [Suspect]
     Active Substance: ACETAMINOPHEN
     Indication: PAIN
     Dosage: 1000 MILLIGRAM
     Route: 065
     Dates: start: 20190615, end: 20190615
  30. FAT EMULSION NOS [Concomitant]
     Active Substance: EGG PHOSPHOLIPIDS\SAFFLOWER OIL\SOYBEAN OIL
     Dosage: UNK
     Dates: start: 20190610
  31. GAMMAGARD [Concomitant]
     Active Substance: HUMAN IMMUNOGLOBULIN G
     Dosage: UNK
     Dates: start: 20190604, end: 20190618
  32. TECHNETIUM TC 99M MPI MDP [Concomitant]
     Dosage: UNK
     Dates: start: 20190606, end: 20190628
  33. FUROSEMIDE. [Concomitant]
     Active Substance: FUROSEMIDE
     Dosage: UNK
     Dates: start: 20190610, end: 20190703
  34. PROPOFOL. [Concomitant]
     Active Substance: PROPOFOL
     Dosage: UNK
     Dates: start: 20190614, end: 20190614
  35. METOCLOPRAMIDE HCL [Concomitant]
     Active Substance: METOCLOPRAMIDE HYDROCHLORIDE
     Dosage: UNK
     Dates: start: 20190616
  36. CEFTRIAXONE. [Suspect]
     Active Substance: CEFTRIAXONE
     Indication: PROPHYLAXIS
     Dosage: 250 MILLIGRAM
     Route: 065
     Dates: start: 20190619, end: 20190622
  37. CEFTRIAXONE. [Suspect]
     Active Substance: CEFTRIAXONE
     Dosage: 2000 MILLIGRAM
     Route: 065
     Dates: start: 20190605, end: 20190618
  38. CEFTRIAXONE. [Suspect]
     Active Substance: CEFTRIAXONE
     Dosage: 1750 MILLIGRAM
     Route: 065
     Dates: start: 20190622, end: 20190622
  39. METHYLPREDNISOLONE. [Suspect]
     Active Substance: METHYLPREDNISOLONE
     Dosage: 20 MILLIGRAM
     Route: 065
     Dates: start: 20190610, end: 20190617
  40. LORAZEPAM. [Concomitant]
     Active Substance: LORAZEPAM
     Dosage: UNK
     Dates: start: 20190618
  41. LIDOCAINE PRILOCAINE BIOGARAN [Concomitant]
     Dosage: UNK
     Dates: start: 20190627
  42. NYSTATIN. [Concomitant]
     Active Substance: NYSTATIN
     Dosage: UNK
     Dates: start: 20190624
  43. FOSCARNET [Concomitant]
     Active Substance: FOSCARNET
     Dosage: UNK
     Dates: start: 20190606, end: 20190622
  44. HYDROCORTISONE. [Concomitant]
     Active Substance: HYDROCORTISONE
     Dosage: UNK
     Dates: start: 20190604, end: 20190604
  45. METHYLPREDNISOLONE. [Suspect]
     Active Substance: METHYLPREDNISOLONE
     Indication: GRAFT VERSUS HOST DISEASE
     Dosage: 10 MILLIGRAM
     Route: 065
     Dates: start: 20190620
  46. METHYLPREDNISOLONE. [Suspect]
     Active Substance: METHYLPREDNISOLONE
     Dosage: 15 MILLIGRAM
     Route: 065
     Dates: start: 20190627, end: 20190702
  47. HYDROMORPHONE HCL [Concomitant]
     Active Substance: HYDROMORPHONE HYDROCHLORIDE
     Dosage: UNK
     Dates: start: 20190604
  48. SUCRALFATE. [Concomitant]
     Active Substance: SUCRALFATE
     Dosage: UNK
     Dates: start: 20190629
  49. POTASSIUM CHLORIDE. [Concomitant]
     Active Substance: POTASSIUM CHLORIDE
     Dosage: UNK
     Dates: start: 20190612, end: 20190613
  50. PHENOL. [Concomitant]
     Active Substance: PHENOL
     Dosage: UNK
     Dates: start: 20190610
  51. CEFTRIAXONE. [Suspect]
     Active Substance: CEFTRIAXONE
     Dosage: 2000 MILLIGRAM
     Route: 065
     Dates: start: 20190622
  52. NORETHINDRONE                      /00044901/ [Suspect]
     Active Substance: NORETHINDRONE
     Indication: PROPHYLAXIS
     Dosage: 10 MILLIGRAM
     Route: 065
     Dates: start: 20190624
  53. FOSAPREPITANT [Concomitant]
     Active Substance: FOSAPREPITANT
     Dosage: UNK
     Dates: start: 20190621, end: 20190621
  54. IMMUNE GLOBULIN [Concomitant]
     Dosage: UNK
     Dates: start: 20190604, end: 20190703
  55. NICARDIPINE HYDROCHLORIDE. [Concomitant]
     Active Substance: NICARDIPINE HYDROCHLORIDE
     Dosage: UNK
     Dates: start: 20190623
  56. LIDOCAINE HYDROCHLORIDE. [Concomitant]
     Active Substance: LIDOCAINE HYDROCHLORIDE
     Dosage: UNK
     Dates: start: 20190630
  57. MELATONIN [Concomitant]
     Active Substance: MELATONIN
     Dosage: UNK
     Dates: start: 20190629
  58. TACROLIMUS. [Concomitant]
     Active Substance: TACROLIMUS
     Dosage: UNK
     Dates: start: 20190624
  59. GRANISETRON HYDROCHLORIDE. [Concomitant]
     Active Substance: GRANISETRON HYDROCHLORIDE
     Dosage: UNK
     Dates: start: 20190604
  60. HUMAN ALBUMIN [Concomitant]
     Active Substance: ALBUMIN HUMAN
     Dosage: UNK
     Dates: start: 20190611, end: 20190702
  61. ONDANSETRON [Concomitant]
     Active Substance: ONDANSETRON
     Dosage: UNK
     Dates: start: 20190614, end: 20190616
  62. CEFTRIAXONE. [Suspect]
     Active Substance: CEFTRIAXONE
     Dosage: 250 MILLIGRAM
     Route: 065
     Dates: start: 20190629, end: 20190705
  63. ALTEPLASE. [Concomitant]
     Active Substance: ALTEPLASE
     Dosage: UNK
     Dates: start: 20190606, end: 20190702
  64. CLOTRIMAZOLE. [Concomitant]
     Active Substance: CLOTRIMAZOLE
     Dosage: UNK
     Dates: start: 20190619, end: 20190624
  65. QUETIAPINE FUMARATE. [Concomitant]
     Active Substance: QUETIAPINE FUMARATE
     Dosage: UNK
     Dates: start: 20190629

REACTIONS (5)
  - Cardiac arrest [Fatal]
  - Graft versus host disease in gastrointestinal tract [Fatal]
  - Respiratory failure [Fatal]
  - Blood bilirubin increased [Fatal]
  - Bacterial infection [Fatal]

NARRATIVE: CASE EVENT DATE: 20190704
